FAERS Safety Report 4912602-4 (Version None)
Quarter: 2006Q1

REPORT INFORMATION
  Report Type: 
  Country: None (occurrence: None)
  Receive Date: 20060215
  Receipt Date: 20060111
  Transmission Date: 20060701
  Serious: Yes (Other)
  Sender: FDA-Public Use
  Company Number: DE-GLAXOSMITHKLINE-D0048431A

PATIENT
  Age: 69 Year
  Sex: Female
  Weight: 66 kg

DRUGS (2)
  1. FLUTIDE DISKUS [Suspect]
     Dosage: 2BLS TWICE PER DAY
     Route: 055
     Dates: start: 19970101
  2. BERODUAL [Concomitant]
     Dosage: 2PUFF FOUR TIMES PER DAY
     Route: 055
     Dates: start: 19940101

REACTIONS (10)
  - ANGINA PECTORIS [None]
  - ANXIETY [None]
  - APNOEA [None]
  - COORDINATION ABNORMAL [None]
  - DIZZINESS [None]
  - EYE SWELLING [None]
  - PAIN IN EXTREMITY [None]
  - PHARMACEUTICAL PRODUCT COMPLAINT [None]
  - PSYCHIATRIC SYMPTOM [None]
  - SLEEP DISORDER [None]
